FAERS Safety Report 19518086 (Version 1)
Quarter: 2021Q3

REPORT INFORMATION
  Report Type: Spontaneous
  Country: US (occurrence: US)
  Receive Date: 20210712
  Receipt Date: 20210712
  Transmission Date: 20211014
  Serious: Yes (Hospitalization, Other)
  Sender: FDA-Public Use
  Company Number: US-HIKMA PHARMACEUTICALS USA INC.-US-H14001-21-03110

PATIENT
  Age: 17 Year
  Sex: Male

DRUGS (11)
  1. METHOTREXATE TABLET [Suspect]
     Active Substance: METHOTREXATE
     Dosage: MC2D8,15,22
     Route: 048
     Dates: start: 20201116
  2. INCB018424 [Suspect]
     Active Substance: RUXOLITINIB
     Indication: ACUTE LYMPHOCYTIC LEUKAEMIA
     Dosage: MC2D8?14
     Route: 048
     Dates: start: 20201013, end: 20201103
  3. INCB018424 [Suspect]
     Active Substance: RUXOLITINIB
     Dosage: MC2D8?14
     Route: 048
     Dates: start: 20201208
  4. PREDNISONE. [Suspect]
     Active Substance: PREDNISONE
     Indication: ACUTE LYMPHOCYTIC LEUKAEMIA
     Dosage: MC2D1?5
     Route: 048
     Dates: start: 20201006, end: 20201103
  5. MERCAPTOPURINE. [Suspect]
     Active Substance: MERCAPTOPURINE
     Dosage: MC2D8?23
     Route: 048
     Dates: start: 20201116
  6. VINCRISTINE [Suspect]
     Active Substance: VINCRISTINE
     Dosage: MC2D1
     Route: 042
     Dates: start: 20201109
  7. METHOTREXATE IT [Suspect]
     Active Substance: METHOTREXATE
     Indication: ACUTE LYMPHOCYTIC LEUKAEMIA
     Dosage: MC2D1
     Route: 037
     Dates: start: 20201006
  8. PREDNISONE. [Suspect]
     Active Substance: PREDNISONE
     Dosage: MC2D1?5
     Route: 048
     Dates: start: 20201109
  9. METHOTREXATE TABLET [Suspect]
     Active Substance: METHOTREXATE
     Indication: ACUTE LYMPHOCYTIC LEUKAEMIA
     Dosage: MC2D8,15,22
     Route: 048
     Dates: start: 20201013, end: 20201103
  10. VINCRISTINE [Suspect]
     Active Substance: VINCRISTINE
     Indication: ACUTE LYMPHOCYTIC LEUKAEMIA
     Dosage: MC2D1
     Route: 042
     Dates: start: 20201006, end: 20201103
  11. MERCAPTOPURINE. [Suspect]
     Active Substance: MERCAPTOPURINE
     Indication: ACUTE LYMPHOCYTIC LEUKAEMIA
     Dosage: MC2D8?23
     Route: 048
     Dates: start: 20201013, end: 20201028

REACTIONS (9)
  - Condition aggravated [Unknown]
  - Herpes zoster [Recovered/Resolved]
  - Lumbar puncture [Unknown]
  - Blood immunoglobulin G abnormal [Unknown]
  - Neuralgia [Unknown]
  - Rash [Unknown]
  - Varicella zoster virus infection [Unknown]
  - Blood immunoglobulin M abnormal [Unknown]
  - Nausea [Unknown]

NARRATIVE: CASE EVENT DATE: 20201006
